FAERS Safety Report 4599435-6 (Version None)
Quarter: 2005Q1

REPORT INFORMATION
  Report Type: 
  Country: None (occurrence: None)
  Receive Date: 20050127
  Receipt Date: 20041013
  Transmission Date: 20050727
  Serious: No
  Sender: FDA-Public Use
  Company Number: USA041081153

PATIENT
  Age: 30 Year
  Sex: Female
  Weight: 60 kg

DRUGS (3)
  1. STRATTERA [Suspect]
     Indication: ATTENTION DEFICIT/HYPERACTIVITY DISORDER
     Dosage: 18 MG/1 DAY
     Dates: start: 20041010
  2. ORAL CONTRACEPTIVE NOS [Concomitant]
  3. ADDERALL EXCITABILITY [Concomitant]

REACTIONS (4)
  - ABDOMINAL PAIN UPPER [None]
  - EXCITABILITY [None]
  - INSOMNIA [None]
  - SOMNOLENCE [None]
